FAERS Safety Report 16034698 (Version 1)
Quarter: 2019Q1

REPORT INFORMATION
  Report Type: Spontaneous
  Country: US (occurrence: US)
  Receive Date: 20190205
  Receipt Date: 20190205
  Transmission Date: 20190418
  Serious: Yes (Hospitalization)
  Sender: FDA-Public Use
  Company Number: None

PATIENT
  Age: 10 Year
  Sex: Female
  Weight: 37.8 kg

DRUGS (6)
  1. VINCRISTINE [Suspect]
     Active Substance: VINCRISTINE
     Dosage: ?          OTHER DOSE:3.6MG;?
     Dates: end: 20190125
  2. METHOTREXATE. [Suspect]
     Active Substance: METHOTREXATE
     Dates: end: 20190125
  3. DAUNORUBICIN [Suspect]
     Active Substance: DAUNORUBICIN
     Dates: end: 20190125
  4. PREDNISONE. [Suspect]
     Active Substance: PREDNISONE
     Dates: end: 20190131
  5. CYTARABINE. [Suspect]
     Active Substance: CYTARABINE
     Dates: end: 20190118
  6. PEG-L-ASPARAGINASE [Suspect]
     Active Substance: PEGASPARGASE
     Dates: end: 20190122

REACTIONS (4)
  - Seizure like phenomena [None]
  - Cerebral haemorrhage [None]
  - Haemorrhagic stroke [None]
  - Intracranial venous sinus thrombosis [None]

NARRATIVE: CASE EVENT DATE: 20190131
